FAERS Safety Report 6560030-0 (Version None)
Quarter: 2010Q1

REPORT INFORMATION
  Report Type: 
  Country: None (occurrence: None)
  Receive Date: 20100129
  Receipt Date: 20090921
  Transmission Date: 20100710
  Serious: No
  Sender: FDA-Public Use
  Company Number: US-ABBOTT-09P-163-0598306-00

PATIENT
  Sex: Male
  Weight: 45.854 kg

DRUGS (1)
  1. HUMIRA [Suspect]
     Indication: CROHN'S DISEASE
     Dates: start: 20090828

REACTIONS (4)
  - DIZZINESS [None]
  - FATIGUE [None]
  - FISTULA DISCHARGE [None]
  - HEADACHE [None]
